FAERS Safety Report 9261882 (Version 2)
Quarter: 2013Q3

REPORT INFORMATION
  Report Type: Report from Study
  Country: IE (occurrence: IE)
  Receive Date: 20130429
  Receipt Date: 20130916
  Transmission Date: 20140515
  Serious: Yes (Hospitalization)
  Sender: FDA-Public Use
  Company Number: IE-ASTRAZENECA-2013SE28628

PATIENT
  Age: 8 Month
  Sex: Female
  Weight: 6.5 kg

DRUGS (6)
  1. SYNAGIS [Suspect]
     Indication: RESPIRATORY SYNCYTIAL VIRUS BRONCHIOLITIS
     Route: 030
     Dates: start: 201209, end: 201302
  2. ABICEC [Concomitant]
     Indication: HYPOVITAMINOSIS
     Route: 048
     Dates: start: 201206, end: 201305
  3. FERINSOL [Concomitant]
     Indication: ANAEMIA NEONATAL
     Route: 048
     Dates: start: 201206, end: 201212
  4. LACTULOSE [Concomitant]
     Indication: CONSTIPATION
     Route: 048
     Dates: start: 201206, end: 201304
  5. GAVISCON [Concomitant]
     Indication: GASTROOESOPHAGEAL REFLUX DISEASE
     Dosage: 1 SACHET EACH BOTTLE MAX 6/DAY (1 SACHET)
     Route: 048
     Dates: start: 201206, end: 20120923
  6. OMEPRAZOLE [Concomitant]
     Indication: GASTROOESOPHAGEAL REFLUX DISEASE
     Route: 048
     Dates: start: 20120921

REACTIONS (3)
  - Parainfluenzae virus infection [Recovered/Resolved]
  - Bronchiolitis [Recovered/Resolved]
  - Respiratory syncytial virus test positive [Recovered/Resolved]
